FAERS Safety Report 19190577 (Version 2)
Quarter: 2021Q3

REPORT INFORMATION
  Report Type: Report from Study
  Country: PH (occurrence: PH)
  Receive Date: 20210428
  Receipt Date: 20210710
  Transmission Date: 20211014
  Serious: Yes (Death, Hospitalization)
  Sender: FDA-Public Use
  Company Number: NVSC2021PH091639

PATIENT
  Age: 56 Year
  Sex: Male

DRUGS (1)
  1. TASIGNA [Suspect]
     Active Substance: NILOTINIB
     Indication: CHRONIC MYELOID LEUKAEMIA
     Dosage: 150 MG, BID (2 CAPSULE TWO TIMES PER DAY)
     Route: 048

REACTIONS (3)
  - Cardiac arrest [Fatal]
  - COVID-19 [Unknown]
  - Pneumonia [Fatal]

NARRATIVE: CASE EVENT DATE: 20200401
